FAERS Safety Report 8033784-4 (Version None)
Quarter: 2012Q1

REPORT INFORMATION
  Report Type: 
  Country: None (occurrence: None)
  Receive Date: 20120110
  Receipt Date: 20120105
  Transmission Date: 20120608
  Serious: No
  Sender: FDA-Public Use
  Company Number: US-PFIZER INC-2012004612

PATIENT
  Age: 12 Year
  Sex: Female
  Weight: 33.56 kg

DRUGS (4)
  1. LAMICTAL [Concomitant]
     Indication: CONVULSION
     Dosage: 100 MG, 2X/DAY
  2. GENOTROPIN [Suspect]
     Indication: GROWTH RETARDATION
     Dosage: UNK
     Dates: end: 20111201
  3. CONCERTA [Concomitant]
     Indication: ATTENTION DEFICIT/HYPERACTIVITY DISORDER
     Dosage: 36 MG, DAILY
  4. CALCIUM WITH VITAMIN D [Concomitant]
     Dosage: 300 MG, 2X/DAY

REACTIONS (2)
  - MOOD ALTERED [None]
  - ABNORMAL BEHAVIOUR [None]
